FAERS Safety Report 4463416-3 (Version None)
Quarter: 2004Q3

REPORT INFORMATION
  Report Type: 
  Country: None (occurrence: None)
  Receive Date: 20040928
  Receipt Date: 20040916
  Transmission Date: 20050211
  Serious: Yes (Hospitalization, Other)
  Sender: FDA-Public Use
  Company Number: HQWYE124620SEP04

PATIENT
  Age: 16 Year
  Sex: Female
  Weight: 59.93 kg

DRUGS (3)
  1. ADVIL COLD AND SINUS [Suspect]
     Indication: SINUS HEADACHE
     Dosage: ORAL
     Route: 048
     Dates: end: 20040101
  2. ADVIL COLD AND SINUS [Suspect]
     Indication: SINUS HEADACHE
     Dosage: ORAL
     Route: 048
     Dates: start: 20040801, end: 20040801
  3. ADVIL COLD AND SINUS [Suspect]
     Indication: SINUS HEADACHE
     Dosage: ORAL
     Route: 048
     Dates: start: 20040901, end: 20040901

REACTIONS (5)
  - BLISTER [None]
  - DRUG HYPERSENSITIVITY [None]
  - ORAL MUCOSAL BLISTERING [None]
  - SWELLING FACE [None]
  - VAGINAL MUCOSAL BLISTERING [None]
